FAERS Safety Report 15629197 (Version 4)
Quarter: 2019Q2

REPORT INFORMATION
  Report Type: Report from Study
  Country: US (occurrence: US)
  Receive Date: 20181116
  Receipt Date: 20190611
  Transmission Date: 20190711
  Serious: No
  Sender: FDA-Public Use
  Company Number: PHEH2018US048957

PATIENT
  Age: 55 Year
  Sex: Female

DRUGS (2)
  1. GILENYA [Suspect]
     Active Substance: FINGOLIMOD HYDROCHLORIDE
     Indication: MULTIPLE SCLEROSIS
     Dosage: 0.5 MG, QD
     Route: 048
     Dates: start: 20181001
  2. GILENYA [Suspect]
     Active Substance: FINGOLIMOD HYDROCHLORIDE
     Indication: RELAPSING MULTIPLE SCLEROSIS

REACTIONS (8)
  - Fatigue [Unknown]
  - Sleep apnoea syndrome [Unknown]
  - Motion sickness [Unknown]
  - Alopecia [Not Recovered/Not Resolved]
  - Headache [Unknown]
  - Acne [Recovering/Resolving]
  - Cystitis interstitial [Unknown]
  - Dizziness [Unknown]

NARRATIVE: CASE EVENT DATE: 20190530
